FAERS Safety Report 4923560-0 (Version None)
Quarter: 2006Q1

REPORT INFORMATION
  Report Type: 
  Country: None (occurrence: None)
  Receive Date: 20060227
  Receipt Date: 20060224
  Transmission Date: 20060701
  Serious: Yes (Other)
  Sender: FDA-Public Use
  Company Number: 200610942EU

PATIENT
  Age: 83 Year
  Sex: Male

DRUGS (1)
  1. NICODERM [Suspect]
     Dosage: 21MG PER DAY
     Route: 062
     Dates: start: 20060101

REACTIONS (2)
  - DIZZINESS [None]
  - HALLUCINATION, VISUAL [None]
